FAERS Safety Report 8012168-9 (Version None)
Quarter: 2011Q4

REPORT INFORMATION
  Report Type: 
  Country: None (occurrence: None)
  Receive Date: 20111228
  Receipt Date: 20111227
  Transmission Date: 20120403
  Serious: Yes (Other)
  Sender: FDA-Public Use
  Company Number: US-CEPHALON-2011005522

PATIENT
  Sex: Female
  Weight: 65 kg

DRUGS (1)
  1. TREANDA [Suspect]
     Route: 042
     Dates: start: 20101001, end: 20110301

REACTIONS (2)
  - HYPOXIA [None]
  - DYSPNOEA EXERTIONAL [None]
